FAERS Safety Report 9706707 (Version 1)
Quarter: 2013Q4

REPORT INFORMATION
  Report Type: Spontaneous
  Country: CH (occurrence: CH)
  Receive Date: 20131125
  Receipt Date: 20131125
  Transmission Date: 20140711
  Serious: Yes (Hospitalization, Other)
  Sender: FDA-Public Use
  Company Number: CH-ELI_LILLY_AND_COMPANY-CH201311005437

PATIENT
  Age: 61 Year
  Sex: Male
  Weight: 110 kg

DRUGS (4)
  1. EFIENT [Suspect]
     Indication: ANGINA PECTORIS
     Dosage: 60 MG, SINGLE
     Route: 048
     Dates: start: 20111124, end: 20111124
  2. EFIENT [Suspect]
     Dosage: 10 MG, QD
     Route: 048
     Dates: start: 20111125, end: 20121123
  3. ASPIRIN [Concomitant]
     Dosage: 300-500 MG LOADING DOSE
     Route: 048
  4. ASPIRIN [Concomitant]
     Dosage: 100 MG, QD
     Route: 048

REACTIONS (2)
  - Haemarthrosis [Recovered/Resolved]
  - Fall [Recovered/Resolved]
